FAERS Safety Report 9760445 (Version 2)
Quarter: 2013Q4

REPORT INFORMATION
  Report Type: Spontaneous
  Country: US (occurrence: US)
  Receive Date: 20131216
  Receipt Date: 20131216
  Transmission Date: 20140711
  Serious: No
  Sender: FDA-Public Use
  Company Number: US-GILEAD-2010-0028938

PATIENT
  Sex: Female
  Weight: 63.5 kg

DRUGS (10)
  1. LETAIRIS [Suspect]
     Indication: PULMONARY ARTERIAL HYPERTENSION
     Route: 048
     Dates: start: 20100419
  2. TENORMIN [Concomitant]
  3. CALTRATE 600 [Concomitant]
  4. PRAVASTATIN [Concomitant]
  5. AMLODIPINE-BENAZEPRIL [Concomitant]
  6. MEFTORMIN HCL ER [Concomitant]
  7. NEXIUM [Concomitant]
  8. CHLORDIAZEPOXIDE-CLIDINIU [Concomitant]
  9. OMEGA 3 [Concomitant]
  10. ASPIRIN [Concomitant]

REACTIONS (4)
  - Poor quality sleep [Recovered/Resolved]
  - Palpitations [Recovered/Resolved]
  - Nasal congestion [Not Recovered/Not Resolved]
  - Headache [Recovered/Resolved]
